FAERS Safety Report 19289641 (Version 1)
Quarter: 2021Q2

REPORT INFORMATION
  Report Type: Spontaneous
  Country: US (occurrence: US)
  Receive Date: 20210521
  Receipt Date: 20210521
  Transmission Date: 20210717
  Serious: No
  Sender: FDA-Public Use
  Company Number: US-RADIUS HEALTH INC.-2020US004249

PATIENT
  Age: 73 Year
  Sex: Female

DRUGS (1)
  1. TYMLOS [Suspect]
     Active Substance: ABALOPARATIDE
     Indication: SENILE OSTEOPOROSIS
     Dosage: 80 MCG, QD
     Route: 058

REACTIONS (4)
  - Product storage error [Not Recovered/Not Resolved]
  - Blood pressure decreased [Not Recovered/Not Resolved]
  - Malaise [Not Recovered/Not Resolved]
  - Blood glucose decreased [Not Recovered/Not Resolved]

NARRATIVE: CASE EVENT DATE: 20200911
